FAERS Safety Report 4392253-3 (Version None)
Quarter: 2004Q3

REPORT INFORMATION
  Report Type: 
  Country: None (occurrence: None)
  Receive Date: 20040702
  Receipt Date: 20040620
  Transmission Date: 20050211
  Serious: Yes (Death)
  Sender: FDA-Public Use
  Company Number: USA-2004-0015682

PATIENT
  Age: 45 Year
  Sex: Male
  Weight: 96.5 kg

DRUGS (7)
  1. OXYCONTIN [Suspect]
  2. HYDROCODONE BITARTRATE [Suspect]
  3. COCAINE (COCAINE) [Suspect]
  4. TRAZODONE HCL [Suspect]
  5. AMITRIPTYLINE HCL [Suspect]
  6. CYCLOBENZAPRINE HCL [Suspect]
  7. ACETAMINOPHEN [Suspect]

REACTIONS (13)
  - ACCIDENT [None]
  - AORTIC ATHEROSCLEROSIS [None]
  - CARDIOMEGALY [None]
  - CARDIOMYOPATHY [None]
  - CHOLELITHIASIS [None]
  - CORONARY ARTERY ATHEROSCLEROSIS [None]
  - DIABETES MELLITUS INADEQUATE CONTROL [None]
  - DRUG SCREEN POSITIVE [None]
  - GALLBLADDER CHOLESTEROLOSIS [None]
  - GASTRIC HAEMORRHAGE [None]
  - HEPATIC CONGESTION [None]
  - HYPERTENSION [None]
  - MULTIPLE DRUG OVERDOSE [None]
